FAERS Safety Report 7061376-2 (Version None)
Quarter: 2010Q4

REPORT INFORMATION
  Report Type: 
  Country: None (occurrence: None)
  Receive Date: 20101026
  Receipt Date: 20101013
  Transmission Date: 20110411
  Serious: Yes (Hospitalization)
  Sender: FDA-Public Use
  Company Number: PHHY2010ZA68946

PATIENT
  Age: 90 Year
  Sex: Female

DRUGS (3)
  1. ACLASTA [Suspect]
     Dosage: 5 MG/ 100 ML
     Route: 042
     Dates: start: 20090501
  2. ACLASTA [Suspect]
     Dosage: UNK
     Route: 042
     Dates: start: 20100901
  3. FOSAMAX [Concomitant]

REACTIONS (4)
  - ANKLE FRACTURE [None]
  - CELLULITIS [None]
  - FALL [None]
  - PNEUMONIA [None]
